FAERS Safety Report 5319301-8 (Version None)
Quarter: 2007Q2

REPORT INFORMATION
  Report Type: 
  Country: None (occurrence: None)
  Receive Date: 20070508
  Receipt Date: 20070426
  Transmission Date: 20071010
  Serious: Yes (Death)
  Sender: FDA-Public Use
  Company Number: US-PFIZER INC-2004094919

PATIENT
  Sex: Male
  Weight: 81.6 kg

DRUGS (12)
  1. NEURONTIN [Suspect]
     Indication: NEUROPATHY PERIPHERAL
  2. PROPOXYPHENE HYDROCHLORIDE [Concomitant]
  3. NAPRONTAG FLEX [Concomitant]
  4. MEPROBAMATE [Concomitant]
  5. ACETAMINOPHEN [Concomitant]
  6. DIPHENHYDRAMINE HCL [Concomitant]
  7. ZOLPIDEM [Concomitant]
  8. ALPRAZOLAM [Concomitant]
  9. TEMAZEPAM [Concomitant]
  10. PAROXETINE [Concomitant]
  11. HYDROCODONE [Concomitant]
  12. DIHYDROCODEINE BITARTRATE INJ [Concomitant]

REACTIONS (4)
  - COMPLETED SUICIDE [None]
  - DEATH [None]
  - NEUROPATHY PERIPHERAL [None]
  - SOMNOLENCE [None]
